FAERS Safety Report 13040415 (Version 1)
Quarter: 2016Q4

REPORT INFORMATION
  Report Type: Spontaneous
  Country: US (occurrence: US)
  Receive Date: 20161219
  Receipt Date: 20161219
  Transmission Date: 20170207
  Serious: Yes (Hospitalization)
  Sender: FDA-Public Use
  Company Number: None

PATIENT
  Age: 73 Year
  Sex: Male
  Weight: 53.2 kg

DRUGS (2)
  1. MIRTAZAPINE. [Suspect]
     Active Substance: MIRTAZAPINE
     Indication: FAILURE TO THRIVE
     Route: 048
     Dates: start: 20161026, end: 20161117
  2. MIRTAZAPINE. [Suspect]
     Active Substance: MIRTAZAPINE
     Indication: DECREASED APPETITE
     Route: 048
     Dates: start: 20161026, end: 20161117

REACTIONS (3)
  - Acute psychosis [None]
  - Hallucination, visual [None]
  - Hallucination, auditory [None]

NARRATIVE: CASE EVENT DATE: 20161117
